FAERS Safety Report 4685719-X (Version None)
Quarter: 2005Q2

REPORT INFORMATION
  Report Type: 
  Country: None (occurrence: None)
  Receive Date: 20050608
  Receipt Date: 20050524
  Transmission Date: 20051028
  Serious: Yes (Hospitalization, Other)
  Sender: FDA-Public Use
  Company Number: HQWYE096114AUG03

PATIENT
  Age: 60 Year
  Sex: Female
  Weight: 77.18 kg

DRUGS (11)
  1. PREMPRO [Suspect]
     Dosage: ORAL
     Route: 048
  2. PREMARIN [Suspect]
     Dosage: ORAL
     Route: 048
     Dates: start: 19920601, end: 20011001
  3. INDOCINE (INDOMETACIN) [Concomitant]
  4. NAPROSYN [Concomitant]
  5. ZESTRIL [Concomitant]
  6. SYNTHROID [Concomitant]
  7. CALRITIN (LORATADINE) [Concomitant]
  8. ALBUTEROL [Concomitant]
  9. VERAPAMIL [Concomitant]
  10. HYDROCHLOROTHIAZIDE (HYDROCHLOROTHAIZIDE) [Concomitant]
  11. CLARINEX [Concomitant]

REACTIONS (21)
  - ABNORMAL DREAMS [None]
  - ANXIETY [None]
  - ASTHENIA [None]
  - BREAST CANCER IN SITU [None]
  - BREAST CANCER METASTATIC [None]
  - BREAST MICROCALCIFICATION [None]
  - CARDIAC DISORDER [None]
  - CARDIOMEGALY [None]
  - CHEST PAIN [None]
  - DEPRESSION [None]
  - DIZZINESS [None]
  - FEAR [None]
  - INSOMNIA [None]
  - METASTASES TO LYMPH NODES [None]
  - MITRAL VALVE INCOMPETENCE [None]
  - NIGHTMARE [None]
  - PANIC ATTACK [None]
  - PULMONARY HYPERTENSION [None]
  - THROMBOSIS [None]
  - TRICUSPID VALVE INCOMPETENCE [None]
  - WEIGHT DECREASED [None]
